FAERS Safety Report 14398428 (Version 1)
Quarter: 2018Q1

REPORT INFORMATION
  Report Type: Spontaneous
  Country: US (occurrence: US)
  Receive Date: 20180116
  Receipt Date: 20180116
  Transmission Date: 20180509
  Serious: No
  Sender: FDA-Public Use
  Company Number: US-BIOGEN-2017BI00476107

PATIENT
  Age: 59 Year
  Sex: Female
  Weight: 40.86 kg

DRUGS (1)
  1. PLEGRIDY [Suspect]
     Active Substance: PEGINTERFERON BETA-1A
     Indication: MULTIPLE SCLEROSIS
     Route: 065
     Dates: start: 20170627

REACTIONS (5)
  - Asthma [Unknown]
  - Influenza like illness [Recovered/Resolved]
  - Confusional state [Unknown]
  - Drug intolerance [Unknown]
  - Cough [Unknown]

NARRATIVE: CASE EVENT DATE: 20171024
